FAERS Safety Report 5951634-4 (Version None)
Quarter: 2008Q4

REPORT INFORMATION
  Report Type: 
  Country: None (occurrence: None)
  Receive Date: 20081110
  Receipt Date: 20081030
  Transmission Date: 20090506
  Serious: Yes (Hospitalization)
  Sender: FDA-Public Use
  Company Number: 6046833

PATIENT
  Age: 53 Year
  Sex: Female

DRUGS (5)
  1. BISOPROLOL FUMARATE [Suspect]
     Indication: HYPERTENSION
     Dosage: (5 MG)
     Route: 048
  2. IBUPROFEN [Suspect]
     Indication: SCIATICA
     Route: 048
     Dates: start: 20071119
  3. METFORMIN HCL [Concomitant]
  4. DIAMICRON (GLICLAZIDE) [Concomitant]
  5. LORAZEPAM [Concomitant]

REACTIONS (3)
  - CHEST PAIN [None]
  - DRUG INTERACTION [None]
  - HYPERTENSION [None]
